FAERS Safety Report 17649320 (Version 1)
Quarter: 2020Q2

REPORT INFORMATION
  Report Type: Spontaneous
  Country: US (occurrence: US)
  Receive Date: 20200409
  Receipt Date: 20200409
  Transmission Date: 20200713
  Serious: No
  Sender: FDA-Public Use
  Company Number: US-MYLANLABS-2020M1034440

PATIENT
  Age: 23 Year
  Sex: Female
  Weight: 57 kg

DRUGS (2)
  1. AMNESTEEM [Suspect]
     Active Substance: ISOTRETINOIN
     Indication: ACNE
     Dosage: 40 MILLIGRAM, QD
     Route: 048
     Dates: start: 20191223, end: 20200326
  2. NEXPLANON [Concomitant]
     Active Substance: ETONOGESTREL
     Dosage: UNK

REACTIONS (1)
  - Headache [Recovered/Resolved]

NARRATIVE: CASE EVENT DATE: 20191226
